FAERS Safety Report 6584243-7 (Version None)
Quarter: 2010Q1

REPORT INFORMATION
  Report Type: 
  Country: None (occurrence: None)
  Receive Date: 20100216
  Receipt Date: 20100202
  Transmission Date: 20100710
  Serious: Yes (Other)
  Sender: FDA-Public Use
  Company Number: US-JNJFOC-20100201809

PATIENT
  Sex: Male

DRUGS (2)
  1. INVEGA [Suspect]
     Indication: DRUG USE FOR UNKNOWN INDICATION
     Route: 048
  2. STEROIDS NOS [Suspect]
     Indication: BACK DISORDER
     Route: 030

REACTIONS (3)
  - AKATHISIA [None]
  - PSYCHOTIC DISORDER [None]
  - RESTLESSNESS [None]
